FAERS Safety Report 5599752-7 (Version None)
Quarter: 2008Q1

REPORT INFORMATION
  Report Type: 
  Country: None (occurrence: None)
  Receive Date: 20080118
  Receipt Date: 20080118
  Transmission Date: 20080703
  Serious: Yes (Hospitalization)
  Sender: FDA-Public Use
  Company Number: None

PATIENT
  Age: 35 Year
  Sex: Female
  Weight: 66.6788 kg

DRUGS (1)
  1. CHANTIX [Suspect]
     Indication: NICOTINE DEPENDENCE
     Dosage: 0.5MG DAILY ORAL
     Route: 048
     Dates: start: 20070107, end: 20080110

REACTIONS (4)
  - IRRITABILITY [None]
  - LEGAL PROBLEM [None]
  - MANIA [None]
  - PHYSICAL ASSAULT [None]
